FAERS Safety Report 4437405-9 (Version None)
Quarter: 2004Q3

REPORT INFORMATION
  Report Type: 
  Country: None (occurrence: None)
  Receive Date: 20040830
  Receipt Date: 20040830
  Transmission Date: 20050211
  Serious: Yes (Hospitalization)
  Sender: FDA-Public Use
  Company Number: None

PATIENT
  Age: 46 Year
  Sex: Male
  Weight: 107.0489 kg

DRUGS (27)
  1. TAXOTERE [Suspect]
     Indication: METASTASIS
     Dosage: TAXOTERE 60 MG/M2 = 119MG
     Dates: start: 20031229
  2. TAXOTERE [Suspect]
     Indication: SPINDLE CELL SARCOMA
     Dosage: TAXOTERE 60 MG/M2 = 119MG
     Dates: start: 20031229
  3. TAXOTERE [Suspect]
     Indication: METASTASIS
     Dosage: TAXOTERE 60 MG/M2 = 119MG
     Dates: start: 20040119
  4. TAXOTERE [Suspect]
     Indication: SPINDLE CELL SARCOMA
     Dosage: TAXOTERE 60 MG/M2 = 119MG
     Dates: start: 20040119
  5. TAXOTERE [Suspect]
     Indication: METASTASIS
     Dosage: TAXOTERE 60 MG/M2 = 119MG
     Dates: start: 20040209
  6. TAXOTERE [Suspect]
     Indication: SPINDLE CELL SARCOMA
     Dosage: TAXOTERE 60 MG/M2 = 119MG
     Dates: start: 20040209
  7. TAXOTERE [Suspect]
     Indication: METASTASIS
     Dosage: TAXOTERE 60 MG/M2 = 119MG
     Dates: start: 20040301
  8. TAXOTERE [Suspect]
     Indication: SPINDLE CELL SARCOMA
     Dosage: TAXOTERE 60 MG/M2 = 119MG
     Dates: start: 20040301
  9. TAXOTERE [Suspect]
     Indication: METASTASIS
     Dosage: TAXOTERE 60 MG/M2 = 119MG
     Dates: start: 20040322
  10. TAXOTERE [Suspect]
     Indication: SPINDLE CELL SARCOMA
     Dosage: TAXOTERE 60 MG/M2 = 119MG
     Dates: start: 20040322
  11. TAXOTERE [Suspect]
     Indication: METASTASIS
     Dosage: TAXOTERE 60 MG/M2 = 119MG
     Dates: start: 20040412
  12. TAXOTERE [Suspect]
     Indication: SPINDLE CELL SARCOMA
     Dosage: TAXOTERE 60 MG/M2 = 119MG
     Dates: start: 20040412
  13. TAXOTERE [Suspect]
     Indication: METASTASIS
     Dosage: TAXOTERE 60 MG/M2 = 119MG
     Dates: start: 20040503
  14. TAXOTERE [Suspect]
     Indication: SPINDLE CELL SARCOMA
     Dosage: TAXOTERE 60 MG/M2 = 119MG
     Dates: start: 20040503
  15. TAXOTERE [Suspect]
     Indication: METASTASIS
     Dosage: TAXOTERE 60 MG/M2 = 119MG
     Dates: start: 20040524
  16. TAXOTERE [Suspect]
     Indication: SPINDLE CELL SARCOMA
     Dosage: TAXOTERE 60 MG/M2 = 119MG
     Dates: start: 20040524
  17. GLEEVEC [Suspect]
     Dosage: 400 MG PO QD
     Route: 048
     Dates: start: 20031222
  18. OXYCONTIN [Concomitant]
  19. OXYCODONE HCL [Concomitant]
  20. NORVASC [Concomitant]
  21. LEXAPRO [Concomitant]
  22. FLOMAX [Concomitant]
  23. SENOKOT [Concomitant]
  24. POTASSIUM [Concomitant]
  25. DIOVAN [Concomitant]
  26. HYDROCHLOROTHIAZIDE [Concomitant]
  27. RESTORIL [Concomitant]

REACTIONS (2)
  - DRUG EFFECT DECREASED [None]
  - PAIN [None]
